FAERS Safety Report 7765003-8 (Version None)
Quarter: 2011Q3

REPORT INFORMATION
  Report Type: 
  Country: None (occurrence: None)
  Receive Date: 20110921
  Receipt Date: 20110908
  Transmission Date: 20111222
  Serious: Yes (Hospitalization)
  Sender: FDA-Public Use
  Company Number: GB-JNJFOC-20110202425

PATIENT
  Age: 21 Year
  Sex: Female

DRUGS (7)
  1. SUMATRIPTAN SUCCINATE [Concomitant]
     Route: 065
  2. IBUPROFEN [Concomitant]
     Route: 065
  3. TRAMADOL HCL [Suspect]
     Route: 048
     Dates: start: 20091001, end: 20091101
  4. OMEPRAZOLE [Concomitant]
     Route: 065
  5. CYCLIZINE [Concomitant]
     Route: 065
  6. TRAMADOL HCL [Suspect]
     Indication: ABDOMINAL PAIN
     Route: 048
     Dates: start: 20090401, end: 20090901
  7. METOCLOPRAMIDE [Suspect]
     Indication: ABDOMINAL PAIN
     Route: 065

REACTIONS (1)
  - ADRENAL INSUFFICIENCY [None]
